FAERS Safety Report 10800510 (Version 1)
Quarter: 2015Q1

REPORT INFORMATION
  Report Type: Spontaneous
  Country: US (occurrence: US)
  Receive Date: 20150216
  Receipt Date: 20150216
  Transmission Date: 20150721
  Serious: No
  Sender: FDA-Public Use
  Company Number: US-ALLERGAN-1408471US

PATIENT
  Age: 45 Year
  Sex: Female

DRUGS (2)
  1. REFRESH PLUS [Concomitant]
     Active Substance: CARBOXYMETHYLCELLULOSE SODIUM
     Indication: DRY EYE
     Dosage: UNK
     Dates: start: 20140424
  2. RESTASIS [Suspect]
     Active Substance: CYCLOSPORINE
     Indication: DRY EYE
     Dosage: 2 GTT, BID
     Route: 047
     Dates: start: 20140424, end: 20140424

REACTIONS (6)
  - Eyelid oedema [Not Recovered/Not Resolved]
  - Eyelid ptosis [Unknown]
  - Eye pruritus [Unknown]
  - Erythema of eyelid [Unknown]
  - Abnormal sensation in eye [Unknown]
  - Eyelid irritation [Recovered/Resolved]

NARRATIVE: CASE EVENT DATE: 20140424
